FAERS Safety Report 6068480-6 (Version None)
Quarter: 2009Q1

REPORT INFORMATION
  Report Type: 
  Country: None (occurrence: None)
  Receive Date: 20090206
  Receipt Date: 20090128
  Transmission Date: 20090719
  Serious: Yes (Other)
  Sender: FDA-Public Use
  Company Number: FR-PFIZER INC-2008156291

PATIENT

DRUGS (4)
  1. LYRICA [Suspect]
     Indication: SCIATICA
     Dosage: 75 MG, 2X/DAY
     Route: 048
     Dates: start: 20070724, end: 20071120
  2. GABAPENTIN [Concomitant]
  3. RIVOTRIL [Concomitant]
  4. LAROXYL [Concomitant]
     Indication: SCIATICA
     Dosage: 10 DROPS PER DAY ORALLY IN 3 INTAKES
     Route: 048
     Dates: start: 20060224, end: 20071120

REACTIONS (4)
  - BREAST CANCER FEMALE [None]
  - VERTIGO [None]
  - WEIGHT DECREASED [None]
  - WEIGHT INCREASED [None]
